FAERS Safety Report 4366030-3 (Version None)
Quarter: 2004Q2

REPORT INFORMATION
  Report Type: 
  Country: None (occurrence: None)
  Receive Date: 20040524
  Receipt Date: 20040507
  Transmission Date: 20050107
  Serious: Yes (Other)
  Sender: FDA-Public Use
  Company Number: 205263

PATIENT
  Age: 65 Year
  Sex: Female
  Weight: 78 kg

DRUGS (12)
  1. MABTHERA(RITUXIMAB) CONC FOR SOLUTION FOR INFUSION [Suspect]
     Indication: LYMPHOMA
     Dosage: 690 MG, INTRAVENOUS
     Route: 042
     Dates: start: 20040312
  2. CORTICOSTEROID NOS (CORTICOSTEROID NOS) [Concomitant]
  3. POLARAMINE [Concomitant]
  4. CYCLOPHOSPHAMIDE [Concomitant]
  5. DOXORUBICIN HCL [Concomitant]
  6. VINCRISTINE [Concomitant]
  7. PREDNISONE TAB [Concomitant]
  8. AVLOCARDYL (PROPRANOLOL HYDROCHLORIDE) [Concomitant]
  9. LEXOMIL (BROMAZEPAM) [Concomitant]
  10. KYTRIL (GRAINSETRON   HYDROCHLORIDE) [Concomitant]
  11. OMEPRAZOLE [Concomitant]
  12. MORPHINE SULFATE [Concomitant]

REACTIONS (3)
  - BRADYPNOEA [None]
  - CHEST PAIN [None]
  - RESPIRATORY ARREST [None]
